FAERS Safety Report 8473295-5 (Version None)
Quarter: 2012Q2

REPORT INFORMATION
  Report Type: 
  Country: None (occurrence: None)
  Receive Date: 20120628
  Receipt Date: 20120622
  Transmission Date: 20120825
  Serious: Yes (Other)
  Sender: FDA-Public Use
  Company Number: JP-AMGEN-JPNSP2012039144

PATIENT
  Sex: Female

DRUGS (3)
  1. ENBREL [Suspect]
     Indication: PRODUCT USED FOR UNKNOWN INDICATION
     Dosage: UNK UNK, UNK
  2. PREDNISOLONE [Suspect]
     Dosage: UNK
  3. RHEUMATREX [Suspect]
     Dosage: 2 DF, WEEKLY
     Route: 048

REACTIONS (7)
  - FEELING ABNORMAL [None]
  - PALPITATIONS [None]
  - CHEST DISCOMFORT [None]
  - SOMNOLENCE [None]
  - COLD SWEAT [None]
  - DECREASED APPETITE [None]
  - BLOOD PRESSURE INCREASED [None]
